FAERS Safety Report 6998480-0 (Version None)
Quarter: 2010Q3

REPORT INFORMATION
  Report Type: 
  Country: None (occurrence: None)
  Receive Date: 20100920
  Receipt Date: 20090911
  Transmission Date: 20110219
  Serious: Yes (Other)
  Sender: FDA-Public Use
  Company Number: US-ASTRAZENECA-2009UW04250

PATIENT
  Age: 45 Year
  Sex: Male

DRUGS (3)
  1. SEROQUEL [Suspect]
     Indication: SCHIZOPHRENIA
     Dosage: 25-100 MG
     Route: 048
     Dates: start: 20010601, end: 20040101
  2. ZYPREXA [Concomitant]
     Dosage: 5-20 MG
     Dates: start: 20020501, end: 20040401
  3. RISPERDAL [Concomitant]
     Dosage: 2-4 MG
     Dates: start: 20001101

REACTIONS (1)
  - PANCREATITIS ACUTE [None]
